FAERS Safety Report 6374424-X (Version None)
Quarter: 2009Q3

REPORT INFORMATION
  Report Type: 
  Country: None (occurrence: None)
  Receive Date: 20090915
  Receipt Date: 20090915
  Transmission Date: 20100115
  Serious: Yes (Hospitalization)
  Sender: FDA-Public Use
  Company Number: None

PATIENT
  Sex: Male
  Weight: 77.7 kg

DRUGS (2)
  1. TEMOZOLOMIDE [Suspect]
     Indication: ACUTE MYELOID LEUKAEMIA
     Dosage: TEMOZOLOMIDE QD PO
     Route: 048
     Dates: start: 20090829, end: 20090912
  2. TEMOZOLOMIDE [Suspect]
     Dosage: TEMOZOLOMIDE QD PO
     Route: 048
     Dates: start: 20090913

REACTIONS (1)
  - NO ADVERSE EVENT [None]
